FAERS Safety Report 5284046-X (Version None)
Quarter: 2007Q1

REPORT INFORMATION
  Report Type: 
  Country: None (occurrence: None)
  Receive Date: 20070327
  Receipt Date: 20070316
  Transmission Date: 20070707
  Serious: Yes (Hospitalization)
  Sender: FDA-Public Use
  Company Number: 238058

PATIENT
  Sex: Male

DRUGS (6)
  1. XOLAIR [Suspect]
     Indication: ASTHMA
     Dosage: SUBCUTANEOUS
     Route: 058
     Dates: start: 20070227
  2. SYMBICORT [Concomitant]
  3. FLIXONASE (FLUTICASONE PROPIONATE) [Concomitant]
  4. TELFAST (FEXOFENADINE HYDROCHLORIDE) [Concomitant]
  5. SINGULAIR [Concomitant]
  6. BRICANYL [Concomitant]

REACTIONS (4)
  - ASTHMA [None]
  - CONDITION AGGRAVATED [None]
  - PNEUMONIA [None]
  - PRURITUS [None]
